FAERS Safety Report 6708846-1 (Version None)
Quarter: 2010Q2

REPORT INFORMATION
  Report Type: 
  Country: None (occurrence: None)
  Receive Date: 20100503
  Receipt Date: 20100503
  Transmission Date: 20101027
  Serious: Yes (Death)
  Sender: FDA-Public Use
  Company Number: None

PATIENT
  Sex: Male
  Weight: 57 kg

DRUGS (3)
  1. HEPARIN [Suspect]
     Indication: PERCUTANEOUS CORONARY INTERVENTION
     Dosage: 5000 UNITS Q15 MINUTES IV X 3 DOSES 4000 UNITS 3000 UNITS 20 MIN APART 2 DOSES
     Route: 042
     Dates: start: 20100421
  2. HEPARIN [Suspect]
  3. HEPARIN [Suspect]

REACTIONS (2)
  - CARDIAC ARREST [None]
  - CORONARY ARTERY OCCLUSION [None]
